FAERS Safety Report 9322027 (Version 1)
Quarter: 2013Q2

REPORT INFORMATION
  Report Type: Spontaneous
  Country: US (occurrence: None)
  Receive Date: 20130529
  Receipt Date: 20130529
  Transmission Date: 20140414
  Serious: Yes (Other)
  Sender: FDA-Public Use
  Company Number: 001537989A

PATIENT
  Sex: Female

DRUGS (5)
  1. PROACTIV SOLUTION RENEWING CLEANSER [Suspect]
     Indication: ACNE
     Route: 061
     Dates: start: 20130205
  2. PROACTIV SOLUTION REPAIRING TREATMENT [Suspect]
     Indication: ACNE
     Route: 061
     Dates: start: 20130205
  3. PROACTIV SOLUTION [Suspect]
     Indication: ACNE
     Route: 061
  4. VITAMIN COMPOUND [Concomitant]
  5. VITAMIN E AND VITAMIN C [Concomitant]

REACTIONS (1)
  - Anaphylactic reaction [None]
